FAERS Safety Report 8142204-0 (Version None)
Quarter: 2012Q1

REPORT INFORMATION
  Report Type: 
  Country: None (occurrence: None)
  Receive Date: 20120216
  Receipt Date: 20120203
  Transmission Date: 20120608
  Serious: Yes (Disabling)
  Sender: FDA-Public Use
  Company Number: DE-ROCHE-742431

PATIENT
  Sex: Male
  Weight: 72 kg

DRUGS (3)
  1. PARACETAMOL [Concomitant]
     Dates: start: 20100730
  2. COPEGUS [Suspect]
     Indication: HEPATITIS C
     Dates: start: 20100730, end: 20101018
  3. PEGINTERFERON ALFA-2A [Suspect]
     Indication: HEPATITIS C
     Dates: start: 20100730, end: 20101015

REACTIONS (2)
  - SCHIZOPHRENIFORM DISORDER [None]
  - DEPRESSION [None]
